FAERS Safety Report 25166972 (Version 1)
Quarter: 2025Q2

REPORT INFORMATION
  Report Type: Spontaneous
  Country: VN (occurrence: VN)
  Receive Date: 20250407
  Receipt Date: 20250407
  Transmission Date: 20250716
  Serious: Yes (Death, Life-Threatening, Hospitalization, Other)
  Sender: Steriscience PTE
  Company Number: VN-STERISCIENCE B.V.-2025-ST-000645

PATIENT
  Age: 44 Year
  Sex: Female

DRUGS (7)
  1. MEROPENEM [Suspect]
     Active Substance: MEROPENEM
     Indication: Escherichia infection
     Route: 042
  2. DEXAMETHASONE [Suspect]
     Active Substance: DEXAMETHASONE
     Indication: Warm autoimmune haemolytic anaemia
     Route: 065
  3. DEXAMETHASONE [Suspect]
     Active Substance: DEXAMETHASONE
     Indication: Disseminated intravascular coagulation
  4. SODIUM CHLORIDE [Concomitant]
     Active Substance: SODIUM CHLORIDE
     Indication: Resuscitation
     Route: 065
  5. NOREPINEPHRINE BITARTRATE [Concomitant]
     Active Substance: NOREPINEPHRINE BITARTRATE
     Indication: Hypotension
     Dosage: 0.05 MICROGRAM/KILOGRAM, QMINUTE
     Route: 065
  6. HUMAN RED BLOOD CELL [Concomitant]
     Active Substance: HUMAN RED BLOOD CELL
     Indication: Disseminated intravascular coagulation
     Route: 065
  7. HUMAN RED BLOOD CELL [Concomitant]
     Active Substance: HUMAN RED BLOOD CELL
     Indication: Autoimmune haemolytic anaemia

REACTIONS (2)
  - Septic shock [Fatal]
  - Drug ineffective [Fatal]
